FAERS Safety Report 16674046 (Version 2)
Quarter: 2020Q2

REPORT INFORMATION
  Report Type: Spontaneous
  Country: US (occurrence: US)
  Receive Date: 20190806
  Receipt Date: 20200403
  Transmission Date: 20200713
  Serious: Yes (Death, Hospitalization, Disabling)
  Sender: FDA-Public Use
  Company Number: US-PFIZER INC-2603507

PATIENT
  Age: 72 Year
  Sex: Male
  Weight: 57.4 kg

DRUGS (10)
  1. PENTOSTATIN. [Suspect]
     Active Substance: PENTOSTATIN
     Indication: CHRONIC LYMPHOCYTIC LEUKAEMIA
     Dosage: 1.7 MG, NOT REPORTED, WEEK1,5,9,13,17AND 21, FREQ: CYCLICAL
     Route: 042
     Dates: start: 20110207
  2. RITUXIMAB. [Suspect]
     Active Substance: RITUXIMAB
     Dosage: 375 MG/M2, CYCLIC (ON DAYS 3 AND 5)
  3. BACTRIM DS [Concomitant]
     Active Substance: SULFAMETHOXAZOLE\TRIMETHOPRIM
     Dosage: UNK, ALTERNATE DAY (Q.O.D.)
  4. PENTOSTATIN. [Suspect]
     Active Substance: PENTOSTATIN
     Dosage: 4 MG/M2, CYCLIC (ON DAY 1) (ON A 21-DAY 6-CYCLE SCHEDULE)
     Route: 042
  5. RITUXIMAB. [Suspect]
     Active Substance: RITUXIMAB
     Dosage: 375 MG/M2, CYCLIC (SUBSEQUENT CYCLES (2-6))
  6. CYCLOPHOSPHAMIDE. [Suspect]
     Active Substance: CYCLOPHOSPHAMIDE
     Indication: CHRONIC LYMPHOCYTIC LEUKAEMIA
     Dosage: 510 MG, NOT REPORTED,WEEK1,5,9,13,17AND 21, FREQ: CYCLICAL
     Route: 042
     Dates: start: 20110207
  7. ACYCLOVIR [ACICLOVIR] [Concomitant]
     Active Substance: ACYCLOVIR
     Dosage: 800 MG, 2X/DAY
  8. RITUXIMAB. [Suspect]
     Active Substance: RITUXIMAB
     Indication: CHRONIC LYMPHOCYTIC LEUKAEMIA
     Dosage: 638 MG, NOT REPORTED,WEEK1,5,9,13,17AND 21, FREQ: CYCLICAL
     Route: 042
     Dates: start: 20110207
  9. CYCLOPHOSPHAMIDE. [Suspect]
     Active Substance: CYCLOPHOSPHAMIDE
     Dosage: 600 MG/M2, CYCLIC (ON DAY 1) (ON A 21-DAY 6-CYCLE SCHEDULE)
     Route: 042
  10. RITUXIMAB. [Suspect]
     Active Substance: RITUXIMAB
     Dosage: 100 MG, CYCLIC (ON DAY 1)

REACTIONS (6)
  - Pneumonia [Unknown]
  - Pleural effusion [Unknown]
  - Speech disorder [Unknown]
  - Pneumonitis [Fatal]
  - Fatigue [Unknown]
  - Hypotension [Unknown]

NARRATIVE: CASE EVENT DATE: 20110411
